FAERS Safety Report 9915286 (Version 1)
Quarter: 2014Q1

REPORT INFORMATION
  Report Type: Report from Study
  Country: US (occurrence: US)
  Receive Date: 20140221
  Receipt Date: 20140221
  Transmission Date: 20141002
  Serious: Yes (Death)
  Sender: FDA-Public Use
  Company Number: US-ROCHE-1353718

PATIENT
  Age: 59 Year
  Sex: Female

DRUGS (4)
  1. XELODA [Suspect]
     Indication: GASTRIC CANCER
     Dosage: 1ST SHIPPED 27-FEB-2013
     Route: 048
  2. AVASTIN [Suspect]
     Indication: GASTRIC CANCER
     Route: 042
     Dates: start: 20130924
  3. AVASTIN [Suspect]
     Route: 042
     Dates: start: 20131017
  4. AVASTIN [Suspect]
     Route: 042
     Dates: start: 20131122, end: 20131122

REACTIONS (1)
  - Death [Fatal]
